FAERS Safety Report 8332739-X (Version None)
Quarter: 2012Q1

REPORT INFORMATION
  Report Type: 
  Country: None (occurrence: None)
  Receive Date: 20120327
  Receipt Date: 20110104
  Transmission Date: 20120608
  Serious: Yes (Hospitalization, Other)
  Sender: FDA-Public Use
  Company Number: PHHY2010US07685

PATIENT
  Age: 42 Year
  Sex: Female
  Weight: 102.1 kg

DRUGS (14)
  1. OSCAL (CALCIUM CARBONATE) [Concomitant]
  2. TOPAMAX [Concomitant]
  3. GLEEVEC [Suspect]
     Indication: CHRONIC MYELOID LEUKAEMIA
     Dosage: 400 MG, QD, ORAL
     Route: 048
     Dates: start: 20090510
  4. ESTRACE [Concomitant]
  5. VITAMIN TAB [Concomitant]
  6. ALLOPURINOL [Concomitant]
  7. IBUPROFEN (ADVIL) [Concomitant]
  8. PRILOSEC [Concomitant]
  9. WELCHOL [Concomitant]
  10. COREGARD (COREGARD) [Concomitant]
  11. TRILIPIX (TRILIPIX) [Concomitant]
  12. BENTYL [Concomitant]
  13. PROZAC [Concomitant]
  14. LUNESTA [Concomitant]

REACTIONS (8)
  - PULMONARY EMBOLISM [None]
  - ABDOMINAL PAIN [None]
  - MYALGIA [None]
  - ARTHRALGIA [None]
  - DIARRHOEA [None]
  - NAUSEA [None]
  - CHEST PAIN [None]
  - BONE PAIN [None]
